FAERS Safety Report 4459010-0 (Version None)
Quarter: 2004Q3

REPORT INFORMATION
  Report Type: 
  Country: None (occurrence: None)
  Receive Date: 20040923
  Receipt Date: 20040923
  Transmission Date: 20050211
  Serious: Yes (Life-Threatening)
  Sender: FDA-Public Use
  Company Number: None

PATIENT
  Age: 62 Year
  Sex: Female
  Weight: 89 kg

DRUGS (7)
  1. ALDACTONE [Suspect]
     Indication: CARDIAC FAILURE CONGESTIVE
     Dosage: 12.5MG PO QD
     Route: 048
     Dates: start: 20040919
  2. SPIRONOLACTONE [Concomitant]
  3. LANOXIN [Concomitant]
  4. DEMADEX [Concomitant]
  5. COZAAR [Concomitant]
  6. ASPIRIN [Concomitant]
  7. ZOLOFT [Concomitant]

REACTIONS (1)
  - HYPERKALAEMIA [None]
